FAERS Safety Report 20919400 (Version 1)
Quarter: 2022Q2

REPORT INFORMATION
  Report Type: Spontaneous
  Country: US (occurrence: None)
  Receive Date: 20220603
  Receipt Date: 20220603
  Transmission Date: 20220721
  Serious: Yes (unspecified)
  Sender: FDA-Public Use
  Company Number: None

PATIENT
  Age: 45 Year
  Sex: Female
  Weight: 66.15 kg

DRUGS (4)
  1. MIRENA [Suspect]
     Active Substance: LEVONORGESTREL
     Indication: Contraception
     Dosage: OTHER QUANTITY : 1 IUD;?OTHER FREQUENCY : ONCE PER 5 YEARS;?OTHER ROUTE : INSERTED INTO THE UTERUS B
     Route: 050
     Dates: start: 20220520, end: 20220602
  2. MIRENA [Suspect]
     Active Substance: LEVONORGESTREL
     Indication: Heavy menstrual bleeding
  3. LEVOTHYROXINE [Concomitant]
     Active Substance: LEVOTHYROXINE
  4. LIOTHYRONINE [Concomitant]
     Active Substance: LIOTHYRONINE

REACTIONS (19)
  - Headache [None]
  - Arthralgia [None]
  - Neck pain [None]
  - Migraine [None]
  - Blindness [None]
  - Tinnitus [None]
  - Myalgia [None]
  - Vision blurred [None]
  - Pain in jaw [None]
  - Paraesthesia [None]
  - Vitreous floaters [None]
  - Ear pain [None]
  - Dizziness [None]
  - Nausea [None]
  - Impaired driving ability [None]
  - Cluster headache [None]
  - Balance disorder [None]
  - Idiopathic intracranial hypertension [None]
  - Idiopathic intracranial hypertension [None]

NARRATIVE: CASE EVENT DATE: 20220520
